FAERS Safety Report 21553117 (Version 2)
Quarter: 2022Q4

REPORT INFORMATION
  Report Type: Spontaneous
  Country: KR (occurrence: KR)
  Receive Date: 20221104
  Receipt Date: 20221128
  Transmission Date: 20230113
  Serious: Yes (Hospitalization, Other)
  Sender: FDA-Public Use
  Company Number: KR-MYLANLABS-2022M1119535

PATIENT
  Age: 43 Year
  Sex: Female
  Weight: 52 kg

DRUGS (11)
  1. TOPOTECAN HYDROCHLORIDE [Suspect]
     Active Substance: TOPOTECAN HYDROCHLORIDE
     Indication: Ovarian cancer
     Dosage: 1.125 MILLIGRAM, QD
     Route: 065
     Dates: start: 20210120, end: 20210124
  2. LYRICA [Concomitant]
     Active Substance: PREGABALIN
     Indication: Ovarian cancer
     Dosage: 75 MILLIGRAM, QD
     Route: 065
     Dates: start: 20210120, end: 20210120
  3. CISPLATIN [Concomitant]
     Active Substance: CISPLATIN
     Dosage: 1 DOSAGE FORM, QD
     Route: 065
     Dates: start: 20200309
  4. HYDROCORTISONE [Concomitant]
     Active Substance: HYDROCORTISONE
     Dosage: 1 DOSAGE FORM, QD
     Route: 065
     Dates: start: 20200316
  5. FENTANYL CITRATE [Concomitant]
     Active Substance: FENTANYL CITRATE
     Dosage: 1 DOSAGE FORM, QD
     Route: 065
     Dates: start: 20190207
  6. DULOXETINE HYDROCHLORIDE [Concomitant]
     Active Substance: DULOXETINE HYDROCHLORIDE
     Dosage: 1 DOSAGE FORM, QD
     Route: 065
     Dates: start: 20191216
  7. LANSOPRAZOLE [Concomitant]
     Active Substance: LANSOPRAZOLE
     Dosage: 1 DOSAGE FORM, QD
     Route: 065
     Dates: start: 20201113
  8. METOCLOPRAMIDE [Concomitant]
     Active Substance: METOCLOPRAMIDE
     Dosage: 1 DOSAGE FORM, QD
     Route: 065
     Dates: start: 20201228
  9. ITOPRIDE HYDROCHLORIDE [Concomitant]
     Active Substance: ITOPRIDE HYDROCHLORIDE
     Dosage: 1 DOSAGE FORM, QD
     Route: 065
     Dates: start: 20201113
  10. SODIUM ALGINATE [Concomitant]
     Active Substance: SODIUM ALGINATE
     Dosage: 1 DOSAGE FORM, QD
     Route: 065
     Dates: start: 20201113
  11. REBAMIPIDE [Concomitant]
     Active Substance: REBAMIPIDE
     Dosage: 1 DOSAGE FORM, QD
     Route: 065
     Dates: start: 20201229

REACTIONS (2)
  - Pancytopenia [Recovering/Resolving]
  - Off label use [Unknown]

NARRATIVE: CASE EVENT DATE: 20210120
